FAERS Safety Report 18335548 (Version 3)
Quarter: 2022Q1

REPORT INFORMATION
  Report Type: Spontaneous
  Country: JP (occurrence: JP)
  Receive Date: 20201001
  Receipt Date: 20220130
  Transmission Date: 20220423
  Serious: Yes (Hospitalization)
  Sender: FDA-Public Use
  Company Number: JP-ACTELION-A-CH2019-189355

PATIENT
  Age: 75 Year
  Sex: Female
  Weight: 39 kg

DRUGS (24)
  1. OPSUMIT [Suspect]
     Active Substance: MACITENTAN
     Indication: Pulmonary arterial hypertension
     Dosage: 5 MG, QD
     Route: 048
  2. OPSUMIT [Suspect]
     Active Substance: MACITENTAN
     Indication: Systemic scleroderma
  3. UPTRAVI [Suspect]
     Active Substance: SELEXIPAG
     Indication: Pulmonary arterial hypertension
     Dosage: UNK
     Route: 048
     Dates: start: 20181113, end: 20181119
  4. UPTRAVI [Suspect]
     Active Substance: SELEXIPAG
     Indication: Systemic scleroderma
     Dosage: 1.2 MG BID
     Route: 048
     Dates: start: 20190122, end: 20190205
  5. UPTRAVI [Suspect]
     Active Substance: SELEXIPAG
     Dosage: 0.6 MG
     Route: 048
     Dates: start: 20190206
  6. UPTRAVI [Suspect]
     Active Substance: SELEXIPAG
     Route: 048
     Dates: start: 20181120, end: 20181210
  7. UPTRAVI [Suspect]
     Active Substance: SELEXIPAG
     Route: 048
     Dates: start: 20181211, end: 20181224
  8. UPTRAVI [Suspect]
     Active Substance: SELEXIPAG
     Route: 048
     Dates: start: 20181225, end: 20190107
  9. UPTRAVI [Suspect]
     Active Substance: SELEXIPAG
     Route: 048
     Dates: start: 20190108, end: 20190121
  10. UPTRAVI [Suspect]
     Active Substance: SELEXIPAG
     Dosage: 0.4 MG (0.2 MG/12 HOURS), 0.8 MG (0.4 MG/12 HOURS), 1.2 MG (0.6 MG/12 HOURS) 1.6 MG (0.8 MG/12 HOURS
     Route: 048
     Dates: start: 20181113, end: 20181119
  11. REVATIO [Concomitant]
     Active Substance: SILDENAFIL CITRATE
     Indication: Pulmonary arterial hypertension
     Dosage: 60 MG, QD
  12. FUROSEMIDE [Concomitant]
     Active Substance: FUROSEMIDE
     Indication: Scleroderma renal crisis
     Dates: end: 20190204
  13. FUROSEMIDE [Concomitant]
     Active Substance: FUROSEMIDE
     Dates: start: 20190205, end: 20190219
  14. FUROSEMIDE [Concomitant]
     Active Substance: FUROSEMIDE
     Dates: start: 20190220, end: 20190225
  15. FUROSEMIDE [Concomitant]
     Active Substance: FUROSEMIDE
     Dates: start: 20190225, end: 20190416
  16. FUROSEMIDE [Concomitant]
     Active Substance: FUROSEMIDE
     Dates: start: 20190417
  17. TELMISARTAN [Concomitant]
     Active Substance: TELMISARTAN
     Indication: Scleroderma renal crisis
  18. ENALAPRIL [Concomitant]
     Active Substance: ENALAPRIL
     Indication: Scleroderma renal crisis
  19. NEXIUM                             /01479302/ [Concomitant]
     Indication: Prophylaxis
  20. BOSENTAN [Concomitant]
     Active Substance: BOSENTAN
     Indication: Pulmonary arterial hypertension
     Dates: start: 20190220, end: 20190222
  21. BOSENTAN [Concomitant]
     Active Substance: BOSENTAN
     Indication: Systemic scleroderma
     Dates: start: 20190304, end: 20190416
  22. CALCIUM POLYSTYRENE SULFONATE [Concomitant]
     Active Substance: CALCIUM POLYSTYRENE SULFONATE
     Indication: Hyperkalaemia
     Dates: start: 20190301
  23. AMPICILLIN AND SULBACTAM [Concomitant]
     Active Substance: AMPICILLIN SODIUM\SULBACTAM SODIUM
     Indication: Pneumonia
     Dates: start: 20190222, end: 20190227
  24. FERROUS CITRATE [Concomitant]
     Active Substance: FERROUS CITRATE
     Indication: Anaemia
     Dates: start: 20190301

REACTIONS (3)
  - Pulmonary congestion [Recovered/Resolved]
  - Pneumonia [Unknown]
  - Blood pressure decreased [Unknown]

NARRATIVE: CASE EVENT DATE: 20190205
